FAERS Safety Report 17212167 (Version 1)
Quarter: 2019Q4

REPORT INFORMATION
  Report Type: Spontaneous
  Country: US (occurrence: US)
  Receive Date: 20191205
  Receipt Date: 20191205
  Transmission Date: 20200122
  Serious: No
  Sender: FDA-Public Use
  Company Number: None

PATIENT
  Age: 48 Year
  Sex: Female

DRUGS (1)
  1. SIMPONI [Suspect]
     Active Substance: GOLIMUMAB
     Dosage: ?          OTHER DOSE:50/0.5ML;OTHER FREQUENCY:UNKNOWN;?
     Route: 058
     Dates: start: 201906

REACTIONS (2)
  - Therapy change [None]
  - Treatment failure [None]

NARRATIVE: CASE EVENT DATE: 20191205
